FAERS Safety Report 7972779-3 (Version None)
Quarter: 2011Q4

REPORT INFORMATION
  Report Type: 
  Country: None (occurrence: None)
  Receive Date: 20111213
  Receipt Date: 20111209
  Transmission Date: 20120403
  Serious: No
  Sender: FDA-Public Use
  Company Number: US-PFIZER INC-2011301150

PATIENT
  Sex: Female

DRUGS (3)
  1. TIKOSYN [Suspect]
     Indication: ATRIAL FIBRILLATION
     Dosage: 0.5 MG, 2X/DAY
     Route: 048
     Dates: start: 20111128
  2. PRADAXA [Concomitant]
     Dosage: UNK
  3. CARDIZEM [Concomitant]
     Dosage: UNK

REACTIONS (1)
  - FAECES PALE [None]
